FAERS Safety Report 9165174 (Version 1)
Quarter: 2013Q1

REPORT INFORMATION
  Report Type: Spontaneous
  Country: NL (occurrence: NL)
  Receive Date: 20130315
  Receipt Date: 20130315
  Transmission Date: 20140127
  Serious: Yes (Death, Other)
  Sender: FDA-Public Use
  Company Number: NL-TEVA-390697ISR

PATIENT
  Age: 66 Year
  Sex: Male
  Weight: 63 kg

DRUGS (3)
  1. VINCRISTIN [Suspect]
     Indication: NON-HODGKIN^S LYMPHOMA
     Dosage: CYCLIC IN THE CONTEXT OF R-CHOP CHEMOTHERAPY
     Route: 042
     Dates: start: 20120927
  2. CYCLOPHOSPHAMIDE [Interacting]
     Indication: NON-HODGKIN^S LYMPHOMA
     Dosage: CYCLIC IN THE CONTEXT OF R-CHOP CHEMOTHERAPY
     Route: 042
     Dates: start: 20120927
  3. DAUNORUBICINE PDR V INFVLST 20MG [Concomitant]
     Dosage: CYCLICALLY EVERY 3 WEEKS R-CHOP SCHEDULE
     Route: 042
     Dates: start: 20120927

REACTIONS (3)
  - Pneumonitis [Fatal]
  - Drug interaction [Unknown]
  - Pneumonitis chemical [None]
